FAERS Safety Report 4482305-1 (Version None)
Quarter: 2004Q4

REPORT INFORMATION
  Report Type: 
  Country: None (occurrence: None)
  Receive Date: 20041022
  Receipt Date: 20041014
  Transmission Date: 20050328
  Serious: Yes (Hospitalization)
  Sender: FDA-Public Use
  Company Number: FR-MERCK-0410FRA00063

PATIENT
  Age: 74 Year
  Sex: Female

DRUGS (9)
  1. ZOCOR [Suspect]
     Route: 048
     Dates: start: 20040803, end: 20040816
  2. PRAVASTATIN SODIUM [Suspect]
     Route: 048
     Dates: start: 20040913, end: 20040922
  3. URAPIDIL [Concomitant]
     Route: 048
     Dates: start: 20030615
  4. OMEPRAZOLE [Concomitant]
     Route: 048
  5. FUROSEMIDE [Concomitant]
     Route: 048
     Dates: start: 20020615
  6. AMLODIPINE BESYLATE [Concomitant]
     Route: 048
     Dates: start: 20010615
  7. IRBESARTAN [Concomitant]
     Route: 048
     Dates: start: 20020615
  8. SODIUM (UNSPECIFIED) [Concomitant]
     Route: 048
  9. POTASSIUM CHLORIDE [Concomitant]
     Route: 048

REACTIONS (2)
  - FAECAL INCONTINENCE [None]
  - URINARY INCONTINENCE [None]
